FAERS Safety Report 17971518 (Version 2)
Quarter: 2020Q3

REPORT INFORMATION
  Report Type: Spontaneous
  Country: DE (occurrence: DE)
  Receive Date: 20200701
  Receipt Date: 20200818
  Transmission Date: 20201103
  Serious: Yes (Other)
  Sender: FDA-Public Use
  Company Number: DE-US-PROVELL PHARMACEUTICALS LLC-E2B_90078293

PATIENT
  Age: 40 Year
  Sex: Female

DRUGS (2)
  1. EUTHYROX [Suspect]
     Active Substance: LEVOTHYROXINE SODIUM
     Dosage: EUTHYROX 75 NF (NEW FORMULATION)
     Dates: start: 2020, end: 202007
  2. EUTHYROX [Suspect]
     Active Substance: LEVOTHYROXINE SODIUM
     Indication: PRODUCT USED FOR UNKNOWN INDICATION
     Dosage: OLD FORMULATION

REACTIONS (14)
  - Abortion spontaneous [Recovered/Resolved]
  - Adverse event [Unknown]
  - Hormone level abnormal [Unknown]
  - Fatigue [Unknown]
  - Impaired work ability [Unknown]
  - Feeling drunk [Unknown]
  - Hypomenorrhoea [Unknown]
  - Oligomenorrhoea [Unknown]
  - Migraine [Unknown]
  - Maternal exposure during pregnancy [Recovered/Resolved]
  - Cardiovascular disorder [Unknown]
  - Dysphonia [Unknown]
  - Hypotension [Unknown]
  - Unevaluable event [Unknown]

NARRATIVE: CASE EVENT DATE: 2020
